FAERS Safety Report 7127948-1 (Version None)
Quarter: 2010Q4

REPORT INFORMATION
  Report Type: 
  Country: None (occurrence: None)
  Receive Date: 20101112
  Receipt Date: 20101029
  Transmission Date: 20110411
  Serious: Yes (Other)
  Sender: FDA-Public Use
  Company Number: 2010P1001931

PATIENT
  Weight: 50 kg

DRUGS (3)
  1. ROCURONIUM BROMIDE [Suspect]
     Indication: ENDOTRACHEAL INTUBATION
     Dosage: 30 MG, X1; IV
     Route: 042
     Dates: start: 20101002, end: 20101002
  2. ZOSYN [Concomitant]
  3. PRES MED UNKNOWN [Concomitant]

REACTIONS (1)
  - NEUROMUSCULAR BLOCK PROLONGED [None]
